FAERS Safety Report 5948487-7 (Version None)
Quarter: 2008Q4

REPORT INFORMATION
  Report Type: 
  Country: None (occurrence: None)
  Receive Date: 20081111
  Receipt Date: 20081106
  Transmission Date: 20090506
  Serious: Yes (Other)
  Sender: FDA-Public Use
  Company Number: A0755674A

PATIENT
  Age: 52 Year
  Sex: Male
  Weight: 80 kg

DRUGS (3)
  1. AMOXICILLIN + CLAVULANATE POTASSIUM [Suspect]
     Dosage: 875MG TWICE PER DAY
     Route: 065
     Dates: start: 20081028
  2. CELESTAMINE TAB [Concomitant]
     Dates: start: 20081028
  3. CIPROFLOXACIN HYDROCORTISONE OTIC SUSPENSION [Concomitant]
     Dosage: 3DROP PER DAY

REACTIONS (1)
  - GOUT [None]
